FAERS Safety Report 4510198-2 (Version None)
Quarter: 2004Q4

REPORT INFORMATION
  Report Type: 
  Country: None (occurrence: None)
  Receive Date: 20041119
  Receipt Date: 20041108
  Transmission Date: 20050328
  Serious: Yes (Other)
  Sender: FDA-Public Use
  Company Number: 02/00408-CDS

PATIENT
  Age: 24 Year
  Sex: Female
  Weight: 80 kg

DRUGS (1)
  1. DRSP+ EE (SH T 186 D) (DROSPIRENONE, ETHINYLESTRADIOL) [Suspect]
     Indication: ORAL CONTRACEPTION
     Dosage: 1 TBS, 21D/28D, ORAL
     Route: 048
     Dates: start: 20001002, end: 20020123

REACTIONS (4)
  - JOINT SWELLING [None]
  - MUSCLE CRAMP [None]
  - PAIN IN EXTREMITY [None]
  - THROMBOSIS [None]
